FAERS Safety Report 11458811 (Version 1)
Quarter: 2015Q3

REPORT INFORMATION
  Report Type: Spontaneous
  Country: US (occurrence: None)
  Receive Date: 20150903
  Receipt Date: 20150903
  Transmission Date: 20151125
  Serious: Yes (Life-Threatening, Hospitalization)
  Sender: FDA-Public Use
  Company Number: None

PATIENT
  Age: 87 Year
  Sex: Male
  Weight: 66.1 kg

DRUGS (14)
  1. COLACE [Concomitant]
     Active Substance: DOCUSATE SODIUM
  2. FERROUS SULFATE [Concomitant]
     Active Substance: FERROUS SULFATE\FERROUS SULFATE, DRIED
  3. XARELTO [Suspect]
     Active Substance: RIVAROXABAN
     Indication: ATRIAL FIBRILLATION
     Route: 048
  4. ONE LITER NASAL CANNULA [Concomitant]
  5. POTASSIUM [Concomitant]
     Active Substance: POTASSIUM
  6. LASIX [Concomitant]
     Active Substance: FUROSEMIDE
  7. TOPROL XL [Concomitant]
     Active Substance: METOPROLOL SUCCINATE
  8. FISH OIL [Concomitant]
     Active Substance: FISH OIL
  9. MICARDIS [Concomitant]
     Active Substance: TELMISARTAN
  10. DIGOXIN. [Concomitant]
     Active Substance: DIGOXIN
  11. PEPCID [Concomitant]
     Active Substance: FAMOTIDINE
  12. LOSARTAN. [Concomitant]
     Active Substance: LOSARTAN
  13. AMBIEN [Concomitant]
     Active Substance: ZOLPIDEM TARTRATE
  14. VOLTAREN [Concomitant]
     Active Substance: DICLOFENAC SODIUM

REACTIONS (2)
  - Cerebral infarction [None]
  - Fall [None]

NARRATIVE: CASE EVENT DATE: 20150820
